FAERS Safety Report 17150413 (Version 1)
Quarter: 2019Q4

REPORT INFORMATION
  Report Type: Spontaneous
  Country: US (occurrence: US)
  Receive Date: 20191213
  Receipt Date: 20191213
  Transmission Date: 20200122
  Serious: Yes (Hospitalization, Other)
  Sender: FDA-Public Use
  Company Number: US-GLAXOSMITHKLINE-US2019222814

PATIENT
  Sex: Female

DRUGS (2)
  1. BREO ELLIPTA [Suspect]
     Active Substance: FLUTICASONE FUROATE\VILANTEROL TRIFENATATE
     Indication: PRODUCT USED FOR UNKNOWN INDICATION
     Dosage: 1 PUFF(S), QD
     Route: 065
     Dates: start: 201908
  2. BREO ELLIPTA [Suspect]
     Active Substance: FLUTICASONE FUROATE\VILANTEROL TRIFENATATE
     Dosage: 1 PUFF(S), QD
     Route: 065

REACTIONS (17)
  - Dizziness [Not Recovered/Not Resolved]
  - Immobile [Recovered/Resolved]
  - Confusional state [Unknown]
  - Tremor [Unknown]
  - Eye movement disorder [Unknown]
  - Eye disorder [Recovered/Resolved]
  - Asthenia [Unknown]
  - Chills [Unknown]
  - Balance disorder [Unknown]
  - Amnesia [Recovered/Resolved]
  - Seizure [Unknown]
  - Fall [Recovered/Resolved]
  - Pruritus [Unknown]
  - Dyskinesia [Recovered/Resolved]
  - Condition aggravated [Unknown]
  - Speech disorder [Not Recovered/Not Resolved]
  - Heart rate increased [Unknown]
